FAERS Safety Report 10723190 (Version 2)
Quarter: 2015Q1

REPORT INFORMATION
  Report Type: Spontaneous
  Country: US (occurrence: US)
  Receive Date: 20150120
  Receipt Date: 20150126
  Transmission Date: 20150721
  Serious: Yes (Other)
  Sender: FDA-Public Use
  Company Number: US-PFIZER INC-2015021439

PATIENT
  Age: 68 Year
  Sex: Male
  Weight: 65 kg

DRUGS (32)
  1. LASIX [Concomitant]
     Active Substance: FUROSEMIDE
     Dosage: 20 MG, DAILY
     Route: 048
  2. VORICONAZOLE. [Concomitant]
     Active Substance: VORICONAZOLE
     Dosage: 200 MG, 2X/DAY
  3. TYLENOL [Concomitant]
     Active Substance: ACETAMINOPHEN
     Indication: PYREXIA
     Dosage: 500 MG, EVERY 4 HRS
     Route: 048
  4. SULFADIAZINE. [Concomitant]
     Active Substance: SULFADIAZINE
     Indication: DECUBITUS ULCER
     Dosage: UNK, 2X/DAY
     Route: 061
  5. VFEND [Suspect]
     Active Substance: VORICONAZOLE
     Indication: PNEUMONIA FUNGAL
     Dosage: TWICE DAILY (200 MG TAKE ONE AND ONE HALF TABLETS TWO TIMES A DAY)
     Route: 048
  6. SILVADENE [Concomitant]
     Active Substance: SILVER SULFADIAZINE
     Dosage: UNK, 2X/DAY (1 APPL, TOP)
     Route: 061
  7. FILGRASTIM [Concomitant]
     Active Substance: FILGRASTIM
     Indication: NEUTROPENIA
     Dosage: 300 MG, 1X/DAY
  8. BENADRYL [Concomitant]
     Active Substance: DIPHENHYDRAMINE HYDROCHLORIDE
     Indication: PRURITUS
     Dosage: 25 MG, 4X/DAY
     Route: 048
  9. POTASSIUM CHLORIDE. [Concomitant]
     Active Substance: POTASSIUM CHLORIDE
     Dosage: 20 MEQ, 4 G, (8 ML, 59 ML/HR, IVPB, TODAY (SCHEDULED TASK = START DT/TM)
     Route: 042
  10. ONDANSETRON [Concomitant]
     Active Substance: ONDANSETRON
     Indication: VOMITING
  11. D + GALACTOSE [Concomitant]
     Dosage: 1000 ML, 30 ML/HR
     Route: 042
  12. VIDAZA [Concomitant]
     Active Substance: AZACITIDINE
     Dosage: UNK (WITHIN THE PAST TWO WEEKS)
  13. ACETAMINOPHEN. [Concomitant]
     Active Substance: ACETAMINOPHEN
     Indication: PYREXIA
     Dosage: 325 MG, EVERY 4 HRS
     Route: 048
  14. MAGNESIUM SULFATE. [Concomitant]
     Active Substance: MAGNESIUM SULFATE
     Dosage: 4 G, UNK (ADDITIVE)
     Route: 042
  15. CIPRO [Concomitant]
     Active Substance: CIPROFLOXACIN HYDROCHLORIDE
     Indication: ANTIBIOTIC THERAPY
     Dosage: 500 MG, 2X/DAY
     Route: 048
  16. PROTONIX [Concomitant]
     Active Substance: PANTOPRAZOLE SODIUM
     Dosage: 40 MG, DAILY
     Route: 048
  17. NEUPOGEN [Concomitant]
     Active Substance: FILGRASTIM
     Dosage: 300 ?G, 1 ML, DAILY
     Route: 058
  18. SODIUM CHLORIDE. [Concomitant]
     Active Substance: SODIUM CHLORIDE
     Dosage: 250 ML, UNK 0.9 % (CONT IVJ 250 ML: 30 ML/HR, IV)
     Route: 042
  19. ACYCLOVIR. [Concomitant]
     Active Substance: ACYCLOVIR
     Dosage: 800 MG, 2X/DAY
     Route: 048
  20. TYLENOL [Concomitant]
     Active Substance: ACETAMINOPHEN
     Indication: PAIN
     Dosage: 325 MG, TWO TABLETS EVERY 4 HRS (AS NEEDED)
  21. PRILOSEC [Concomitant]
     Active Substance: OMEPRAZOLE MAGNESIUM
     Indication: DYSPEPSIA
     Dosage: 20 MG, AS NEEDED
     Route: 048
  22. COLACE [Concomitant]
     Active Substance: DOCUSATE SODIUM
     Indication: CONSTIPATION
     Dosage: 100 MG, DAILY
     Route: 048
  23. ACETAMINOPHEN. [Concomitant]
     Active Substance: ACETAMINOPHEN
     Indication: PAIN
     Dosage: 650 MG, 1X/DAY
     Route: 048
  24. HYDROCORTISONE. [Concomitant]
     Active Substance: HYDROCORTISONE
     Dosage: 100 MG, 2 ML, 1X/DAY
     Route: 042
  25. ZOFRAN [Concomitant]
     Active Substance: ONDANSETRON HYDROCHLORIDE
     Dosage: UNK
  26. VFEND [Suspect]
     Active Substance: VORICONAZOLE
     Indication: LEUKOPENIA
     Dosage: 200 MG, UNK (60 DAY SUPPLY)
     Route: 048
  27. VFEND [Suspect]
     Active Substance: VORICONAZOLE
     Indication: MYELODYSPLASTIC SYNDROME
     Dosage: 300 MG, 2X/DAY
     Route: 048
  28. LASIX [Concomitant]
     Active Substance: FUROSEMIDE
     Indication: FLUID RETENTION
     Dosage: 80 MG, DAILY (QAM)
     Route: 048
  29. LISINOPRIL. [Concomitant]
     Active Substance: LISINOPRIL
     Indication: BLOOD PRESSURE ABNORMAL
     Dosage: 5 MG, 1X/DAY
  30. LISINOPRIL. [Concomitant]
     Active Substance: LISINOPRIL
     Dosage: 6 MG, DAILY
     Route: 048
  31. MAALOX ANTACID [Concomitant]
     Active Substance: ALUMINUM HYDROXIDE\DIMETHICONE\MAGNESIUM HYDROXIDE
     Indication: DYSPEPSIA
     Dosage: 15 ML, EVERY 4 HRS
     Route: 048
  32. ONDANSETRON [Concomitant]
     Active Substance: ONDANSETRON
     Indication: NAUSEA
     Dosage: 8 MG, 4 ML, 3X/DAY
     Route: 042

REACTIONS (1)
  - Platelet count decreased [Unknown]

NARRATIVE: CASE EVENT DATE: 20150115
